FAERS Safety Report 23827734 (Version 3)
Quarter: 2024Q2

REPORT INFORMATION
  Report Type: Spontaneous
  Country: BR (occurrence: BR)
  Receive Date: 20240507
  Receipt Date: 20240613
  Transmission Date: 20240716
  Serious: Yes (Death)
  Sender: FDA-Public Use
  Company Number: BR-002147023-NVSC2024BR096345

PATIENT
  Sex: Female

DRUGS (2)
  1. KYMRIAH [Suspect]
     Active Substance: TISAGENLECLEUCEL
     Indication: Non-Hodgkin^s lymphoma
     Dosage: UNK, ONCE/SINGLE
     Route: 042
  2. MABTHERA [Concomitant]
     Active Substance: RITUXIMAB
     Indication: Non-Hodgkin^s lymphoma
     Dosage: 1400 MG (5 CYCLES EVENRY 21 DAYS ENDOVENOUS)
     Route: 065
     Dates: start: 20240109

REACTIONS (2)
  - Polyneuropathy [Fatal]
  - Non-Hodgkin^s lymphoma [Fatal]
